FAERS Safety Report 8508348-6 (Version None)
Quarter: 2012Q3

REPORT INFORMATION
  Report Type: 
  Country: None (occurrence: None)
  Receive Date: 20120713
  Receipt Date: 20120703
  Transmission Date: 20120928
  Serious: Yes (Other)
  Sender: FDA-Public Use
  Company Number: PHHY2012CA014360

PATIENT
  Sex: Female

DRUGS (1)
  1. SANDOSTATIN LAR [Suspect]
     Indication: ACROMEGALY
     Dosage: 20 MG, EVERY FOUR WEEKS
     Route: 030
     Dates: start: 20120213

REACTIONS (8)
  - SENSATION OF PRESSURE [None]
  - BLOOD BLISTER [None]
  - INJECTION SITE HAEMORRHAGE [None]
  - BLOOD PRESSURE SYSTOLIC INCREASED [None]
  - PALLOR [None]
  - FEELING HOT [None]
  - EYE HAEMORRHAGE [None]
  - OCULAR HYPERAEMIA [None]
